FAERS Safety Report 19362287 (Version 1)
Quarter: 2021Q2

REPORT INFORMATION
  Report Type: Spontaneous
  Country: AU (occurrence: AU)
  Receive Date: 20210601
  Receipt Date: 20210601
  Transmission Date: 20210717
  Serious: Yes (Hospitalization)
  Sender: FDA-Public Use
  Company Number: AU-GE HEALTHCARE LIFE SCIENCES-2021CSU002551

PATIENT

DRUGS (4)
  1. OMNIPAQUE [Suspect]
     Active Substance: IOHEXOL
     Indication: COMPUTERISED TOMOGRAM
     Dosage: 75 ML, SINGLE
     Route: 042
     Dates: start: 20210517, end: 20210517
  2. PEMBROLIZUMAB. [Suspect]
     Active Substance: PEMBROLIZUMAB
     Indication: SARCOMA
     Dosage: 200 MG
     Route: 065
     Dates: start: 20200907
  3. PEMBROLIZUMAB. [Suspect]
     Active Substance: PEMBROLIZUMAB
     Indication: METASTASES TO LUNG
  4. OMNIPAQUE [Suspect]
     Active Substance: IOHEXOL
     Indication: PRODUCT USED FOR UNKNOWN INDICATION

REACTIONS (3)
  - Sleep disorder [Recovering/Resolving]
  - Rash pruritic [Recovering/Resolving]
  - Pain [Recovering/Resolving]

NARRATIVE: CASE EVENT DATE: 20210518
